FAERS Safety Report 7135152-6 (Version None)
Quarter: 2010Q4

REPORT INFORMATION
  Report Type: 
  Country: None (occurrence: None)
  Receive Date: 20101203
  Receipt Date: 20101122
  Transmission Date: 20110411
  Serious: No
  Sender: FDA-Public Use
  Company Number: US-PFIZER INC-2010154795

PATIENT
  Age: 38 Year

DRUGS (1)
  1. LYRICA [Suspect]
     Indication: HEADACHE
     Dosage: 50 MG, 2X/DAY

REACTIONS (1)
  - FATIGUE [None]
